FAERS Safety Report 7004242-0 (Version None)
Quarter: 2010Q3

REPORT INFORMATION
  Report Type: 
  Country: None (occurrence: None)
  Receive Date: 20100920
  Receipt Date: 20100208
  Transmission Date: 20110219
  Serious: No
  Sender: FDA-Public Use
  Company Number: US-WYE-H13547310

PATIENT
  Sex: Female
  Weight: 53.12 kg

DRUGS (1)
  1. PRISTIQ [Suspect]
     Indication: ANXIETY
     Route: 048
     Dates: start: 20100205

REACTIONS (8)
  - ABNORMAL DREAMS [None]
  - BRUXISM [None]
  - CONDITION AGGRAVATED [None]
  - HEADACHE [None]
  - NAUSEA [None]
  - PAIN IN JAW [None]
  - SLEEP DISORDER [None]
  - YAWNING [None]
